FAERS Safety Report 5586584-9 (Version None)
Quarter: 2008Q1

REPORT INFORMATION
  Report Type: 
  Country: None (occurrence: None)
  Receive Date: 20080110
  Receipt Date: 20070921
  Transmission Date: 20080703
  Serious: No
  Sender: FDA-Public Use
  Company Number: US-BAYER-US-2007-036057

PATIENT
  Sex: Female

DRUGS (2)
  1. YAZ [Suspect]
     Indication: MENSTRUATION IRREGULAR
     Route: 048
     Dates: start: 20060901
  2. ANTIEPILEPTICS [Concomitant]
     Indication: SEIZURE ANOXIC

REACTIONS (1)
  - AMENORRHOEA [None]
